FAERS Safety Report 7709026-3 (Version None)
Quarter: 2011Q3

REPORT INFORMATION
  Report Type: 
  Country: None (occurrence: None)
  Receive Date: 20110825
  Receipt Date: 20110819
  Transmission Date: 20111222
  Serious: Yes (Life-Threatening)
  Sender: FDA-Public Use
  Company Number: JP-SANOFI-AVENTIS-2011SA053657

PATIENT
  Age: 69 Year
  Sex: Male
  Weight: 61 kg

DRUGS (4)
  1. PLAVIX [Suspect]
     Route: 065
     Dates: start: 20090901
  2. PLAVIX [Suspect]
     Route: 065
     Dates: start: 20090902, end: 20091023
  3. HEPARIN [Concomitant]
     Indication: PERCUTANEOUS CORONARY INTERVENTION
     Dosage: DOSE:7000 UNIT(S)
     Route: 042
     Dates: start: 20090903, end: 20090903
  4. ASPIRIN [Concomitant]
     Route: 048
     Dates: start: 20090831, end: 20091026

REACTIONS (5)
  - PLATELET COUNT DECREASED [None]
  - HAEMOGLOBIN DECREASED [None]
  - HAEMATOCRIT DECREASED [None]
  - VARICES OESOPHAGEAL [None]
  - BLOOD GLUCOSE INCREASED [None]
